FAERS Safety Report 4495757-8 (Version None)
Quarter: 2004Q4

REPORT INFORMATION
  Report Type: 
  Country: None (occurrence: None)
  Receive Date: 20041104
  Receipt Date: 20041019
  Transmission Date: 20050328
  Serious: Yes (Death)
  Sender: FDA-Public Use
  Company Number: 205517

PATIENT
  Age: 46 Year
  Sex: Female

DRUGS (4)
  1. AVONEX [Suspect]
     Indication: MULTIPLE SCLEROSIS
  2. AVONEX [Suspect]
     Indication: MULTIPLE SCLEROSIS
     Dates: start: 20040809, end: 20040101
  3. BACLOFEN [Concomitant]
  4. LEXAPRO [Concomitant]

REACTIONS (7)
  - ANOREXIA [None]
  - BACK PAIN [None]
  - DEPRESSION [None]
  - HYPOAESTHESIA [None]
  - NEURALGIA [None]
  - SUICIDAL IDEATION [None]
  - WEIGHT DECREASED [None]
